APPROVED DRUG PRODUCT: MYTREX F
Active Ingredient: NYSTATIN; TRIAMCINOLONE ACETONIDE
Strength: 100,000 UNITS/GM;0.1%
Dosage Form/Route: OINTMENT;TOPICAL
Application: A062601 | Product #001
Applicant: SAVAGE LABORATORIES INC DIV ALTANA INC
Approved: Oct 9, 1985 | RLD: No | RS: No | Type: DISCN